FAERS Safety Report 15127807 (Version 1)
Quarter: 2018Q3

REPORT INFORMATION
  Report Type: Spontaneous
  Country: TR (occurrence: TR)
  Receive Date: 20180710
  Receipt Date: 20180710
  Transmission Date: 20181010
  Serious: Yes (Hospitalization)
  Sender: FDA-Public Use
  Company Number: TR-SHIRE-TR201823953

PATIENT

DRUGS (5)
  1. SALICYLATE [Concomitant]
     Active Substance: SALICYLIC ACID
     Indication: KAWASAKI^S DISEASE
     Dosage: UNK UNK, 1X/DAY:QD
  2. METHYLPREDNISOLONE. [Concomitant]
     Active Substance: METHYLPREDNISOLONE
     Indication: THROMBOCYTOSIS
  3. KIOVIG [Suspect]
     Active Substance: HUMAN IMMUNOGLOBULIN G
     Indication: KAWASAKI^S DISEASE
     Dosage: 2 GM/KG
     Route: 042
  4. METHYLPREDNISOLONE. [Concomitant]
     Active Substance: METHYLPREDNISOLONE
     Indication: PYREXIA
     Dosage: UNK, 1X/DAY:QD
  5. PREDNISOLONE. [Concomitant]
     Active Substance: PREDNISOLONE
     Indication: PYREXIA

REACTIONS (1)
  - Drug resistance [Unknown]
